FAERS Safety Report 17834273 (Version 2)
Quarter: 2020Q4

REPORT INFORMATION
  Report Type: Spontaneous
  Country: US (occurrence: US)
  Receive Date: 20200528
  Receipt Date: 20201230
  Transmission Date: 20210113
  Serious: No
  Sender: FDA-Public Use
  Company Number: US-SA-2020SA136258

PATIENT

DRUGS (1)
  1. DUPIXENT [Suspect]
     Active Substance: DUPILUMAB
     Indication: DERMATITIS ATOPIC
     Dosage: 300 MG, QOW
     Route: 058
     Dates: start: 201910

REACTIONS (8)
  - Dermatitis atopic [Recovered/Resolved]
  - Rash [Unknown]
  - Therapeutic response decreased [Not Recovered/Not Resolved]
  - Hypersensitivity [Unknown]
  - Pruritus [Not Recovered/Not Resolved]
  - Product storage error [Unknown]
  - Hair colour changes [Unknown]
  - Product use issue [Unknown]

NARRATIVE: CASE EVENT DATE: 2020
